FAERS Safety Report 7556686-6 (Version None)
Quarter: 2011Q2

REPORT INFORMATION
  Report Type: 
  Country: None (occurrence: None)
  Receive Date: 20110616
  Receipt Date: 20110616
  Transmission Date: 20111010
  Serious: Yes (Hospitalization)
  Sender: FDA-Public Use
  Company Number: None

PATIENT
  Age: 71 Year
  Sex: Male
  Weight: 80.5 kg

DRUGS (1)
  1. INDOMETHACIN [Suspect]
     Indication: GOUT
     Dosage: 50 MG PRN PO
     Route: 048
     Dates: start: 20100527, end: 20100912

REACTIONS (8)
  - BRADYARRHYTHMIA [None]
  - NODAL ARRHYTHMIA [None]
  - RENAL FAILURE ACUTE [None]
  - BRADYCARDIA [None]
  - HYPONATRAEMIA [None]
  - CARDIAC FAILURE CONGESTIVE [None]
  - HYPERKALAEMIA [None]
  - DEHYDRATION [None]
